FAERS Safety Report 12694581 (Version 2)
Quarter: 2020Q4

REPORT INFORMATION
  Report Type: Spontaneous
  Country: US (occurrence: US)
  Receive Date: 20160829
  Receipt Date: 20201208
  Transmission Date: 20210113
  Serious: Yes (Death, Hospitalization)
  Sender: FDA-Public Use
  Company Number: US-BAYER-2016-105277

PATIENT
  Age: 94 Year
  Sex: Female
  Weight: 61.55 kg

DRUGS (2)
  1. BAYER LOW DOSE [Suspect]
     Active Substance: ASPIRIN
     Indication: PRODUCT USED FOR UNKNOWN INDICATION
     Dosage: 81 MG, QD
     Route: 048
  2. XARELTO [Suspect]
     Active Substance: RIVAROXABAN
     Indication: DEEP VEIN THROMBOSIS
     Dosage: 15 MG, QD
     Route: 048
     Dates: start: 20150305, end: 20150313

REACTIONS (5)
  - Gastrointestinal haemorrhage [Fatal]
  - Haematuria [Unknown]
  - Acute myeloid leukaemia [Fatal]
  - Coronary artery disease [Fatal]
  - Contusion [Unknown]

NARRATIVE: CASE EVENT DATE: 201503
